FAERS Safety Report 20872315 (Version 5)
Quarter: 2022Q3

REPORT INFORMATION
  Report Type: Spontaneous
  Country: US (occurrence: US)
  Receive Date: 20220525
  Receipt Date: 20220819
  Transmission Date: 20221027
  Serious: Yes (Other)
  Sender: FDA-Public Use
  Company Number: US-ALIMERA SCIENCES INC.-US-A16013-22-000112

PATIENT
  Age: 59 Year
  Sex: Male

DRUGS (2)
  1. ILUVIEN [Suspect]
     Active Substance: FLUOCINOLONE ACETONIDE
     Indication: Diabetic retinal oedema
     Dosage: 0.25 MICROGRAM, QD -UNKNOWN EYE
     Route: 031
     Dates: start: 202003
  2. OZURDEX [Concomitant]
     Active Substance: DEXAMETHASONE
     Indication: Macular oedema
     Dosage: UNKNOWN
     Route: 031
     Dates: start: 202003

REACTIONS (3)
  - Intraocular pressure increased [Unknown]
  - Retinal degeneration [Unknown]
  - Visual acuity reduced [Unknown]

NARRATIVE: CASE EVENT DATE: 20200501
